FAERS Safety Report 4577057-0 (Version None)
Quarter: 2005Q1

REPORT INFORMATION
  Report Type: 
  Country: None (occurrence: None)
  Receive Date: 20050210
  Receipt Date: 20050202
  Transmission Date: 20050727
  Serious: Yes (Life-Threatening)
  Sender: FDA-Public Use
  Company Number: FR-SANOFI-SYNTHELABO-A02200500273

PATIENT
  Age: 76 Year
  Sex: Male

DRUGS (4)
  1. KYTRIL [Suspect]
     Indication: COLON CANCER METASTATIC
     Route: 042
     Dates: start: 20041027
  2. ELVORINE [Suspect]
     Indication: COLON CANCER METASTATIC
     Route: 042
     Dates: start: 20041027
  3. FLUOROURACIL [Suspect]
     Indication: COLON CANCER METASTATIC
     Route: 042
     Dates: start: 20041027
  4. ELOXATIN [Suspect]
     Indication: COLON CANCER METASTATIC
     Route: 042
     Dates: start: 20041027, end: 20041027

REACTIONS (2)
  - DIALYSIS [None]
  - RENAL FAILURE ACUTE [None]
